FAERS Safety Report 8163243-X (Version None)
Quarter: 2012Q1

REPORT INFORMATION
  Report Type: 
  Country: None (occurrence: None)
  Receive Date: 20120224
  Receipt Date: 20110728
  Transmission Date: 20120608
  Serious: No
  Sender: FDA-Public Use
  Company Number: US-PFIZER INC-K201100901

PATIENT
  Sex: Female
  Weight: 53.96 kg

DRUGS (1)
  1. FLECTOR [Suspect]
     Indication: NECK PAIN
     Dosage: UNK PATCH, UNK
     Route: 061
     Dates: start: 20110726, end: 20110726

REACTIONS (4)
  - APPLICATION SITE PAIN [None]
  - APPLICATION SITE IRRITATION [None]
  - APPLICATION SITE PRURITUS [None]
  - APPLICATION SITE RASH [None]
